FAERS Safety Report 7894370-X (Version None)
Quarter: 2011Q4

REPORT INFORMATION
  Report Type: 
  Country: None (occurrence: None)
  Receive Date: 20111104
  Receipt Date: 20111026
  Transmission Date: 20120403
  Serious: Yes (Life-Threatening, Hospitalization)
  Sender: FDA-Public Use
  Company Number: US-ROCHE-1007498

PATIENT
  Age: 62 Year
  Sex: Female
  Weight: 85.91 kg

DRUGS (3)
  1. PACLITAXEL [Suspect]
     Indication: OVARIAN EPITHELIAL CANCER
     Dosage: OVER 1 HR ON DAYS 1,8 AND 15
     Route: 042
     Dates: start: 20110809
  2. CARBOPLATIN [Suspect]
     Indication: OVARIAN EPITHELIAL CANCER
     Dosage: AUC 6 ON DAY 1
     Route: 033
     Dates: start: 20110809
  3. AVASTIN [Suspect]
     Indication: OVARIAN EPITHELIAL CANCER
     Route: 042
     Dates: start: 20110809

REACTIONS (11)
  - URINARY TRACT PAIN [None]
  - DYSPNOEA [None]
  - ANAEMIA [None]
  - EMBOLISM [None]
  - NEUTROPHIL COUNT DECREASED [None]
  - CONSTIPATION [None]
  - POLLAKIURIA [None]
  - URINARY TRACT INFECTION [None]
  - NAUSEA [None]
  - WHITE BLOOD CELL COUNT DECREASED [None]
  - VOMITING [None]
